FAERS Safety Report 7474674-5 (Version None)
Quarter: 2011Q2

REPORT INFORMATION
  Report Type: 
  Country: None (occurrence: None)
  Receive Date: 20110505
  Receipt Date: 20110426
  Transmission Date: 20111010
  Serious: Yes (Hospitalization)
  Sender: FDA-Public Use
  Company Number: DSJ-2011-07979

PATIENT
  Age: 51 Year
  Sex: Female
  Weight: 60.2 kg

DRUGS (4)
  1. OLMESARTAN MEDOXOMIL [Suspect]
     Indication: HYPERTENSION
     Dosage: 10 MG,PER ORAL, 20 MG,PER ORAL
     Route: 048
     Dates: start: 20110215, end: 20110317
  2. OLMESARTAN MEDOXOMIL [Suspect]
     Indication: HYPERTENSION
     Dosage: 10 MG,PER ORAL, 20 MG,PER ORAL
     Route: 048
     Dates: start: 20110318, end: 20110420
  3. BOUFUUTSUUSHOUSAN (HERBAL EXTRACT NOS)(ORAL POWDER) (HERBAL EXTRACT NO [Suspect]
     Indication: OBESITY
     Dosage: ,PER ORAL
     Route: 048
     Dates: start: 20110402, end: 20110420
  4. PEMILASTON (PEMIROLAST POTASSIUM) (TABLET) (PEMIROLAST POTASSIUM) [Suspect]
     Indication: PRODUCT USED FOR UNKNOWN INDICATION
     Dosage: 10 MG,PER ORAL
     Route: 048
     Dates: start: 20110402, end: 20110402

REACTIONS (3)
  - GENERAL PHYSICAL HEALTH DETERIORATION [None]
  - LIVER DISORDER [None]
  - HEPATIC FUNCTION ABNORMAL [None]
